FAERS Safety Report 7865367-0 (Version None)
Quarter: 2011Q4

REPORT INFORMATION
  Report Type: 
  Country: None (occurrence: None)
  Receive Date: 20111028
  Receipt Date: 20101206
  Transmission Date: 20120403
  Serious: No
  Sender: FDA-Public Use
  Company Number: US-GLAXOSMITHKLINE-A0897996A

PATIENT
  Age: 76 Year
  Sex: Female

DRUGS (10)
  1. CALCIUM CARBONATE [Concomitant]
  2. FISH OIL [Concomitant]
  3. ADVAIR DISKUS 100/50 [Suspect]
     Dosage: 2PUFF TWICE PER DAY
     Route: 055
     Dates: start: 20000101, end: 20050101
  4. ASCORBIC ACID [Concomitant]
  5. MAGNESIUM [Concomitant]
  6. LISINOPRIL [Concomitant]
  7. LEXAPRO [Concomitant]
  8. HYDROXYZINE [Concomitant]
  9. MULTI-VITAMIN [Concomitant]
  10. GARLIC [Concomitant]

REACTIONS (2)
  - TREATMENT NONCOMPLIANCE [None]
  - HEART RATE IRREGULAR [None]
